FAERS Safety Report 7913752-0 (Version None)
Quarter: 2011Q4

REPORT INFORMATION
  Report Type: 
  Country: None (occurrence: None)
  Receive Date: 20111115
  Receipt Date: 20111108
  Transmission Date: 20120403
  Serious: Yes (Other)
  Sender: FDA-Public Use
  Company Number: US-BRISTOL-MYERS SQUIBB COMPANY-15768690

PATIENT
  Age: 52 Year
  Sex: Male
  Weight: 65 kg

DRUGS (8)
  1. DIDANOSINE [Suspect]
     Indication: ANTIRETROVIRAL THERAPY
  2. ABACAVIR SULFATE [Suspect]
     Indication: ANTIRETROVIRAL THERAPY
     Dosage: 300 MG TABLET
  3. TENOFOVIR DF + EMTRICITABINE [Suspect]
     Indication: ANTIRETROVIRAL THERAPY
     Dosage: 300/200 MG TABLET
  4. NEVIRAPINE [Suspect]
     Indication: ANTIRETROVIRAL THERAPY
     Dosage: 200MG TABLET
  5. ZIDOVUDINE [Suspect]
     Indication: ANTIRETROVIRAL THERAPY
     Dosage: 300 MG TABLET
  6. LAMIVUDINE (EPIVIR HBV) [Suspect]
     Indication: ANTIRETROVIRAL THERAPY
     Dosage: 150MG MG TABLET
  7. ZERIT [Suspect]
     Indication: ANTIRETROVIRAL THERAPY
     Dosage: 40MG.
     Route: 048
     Dates: start: 19980101, end: 20030401
  8. TENOFOVIR DISOPROXIL FUMARATE [Suspect]
     Indication: ANTIRETROVIRAL THERAPY
     Dosage: 1DF: 300 MG TABLET

REACTIONS (7)
  - CACHEXIA [None]
  - LIPODYSTROPHY ACQUIRED [None]
  - HYPOAESTHESIA [None]
  - CHRONIC FATIGUE SYNDROME [None]
  - VASODILATATION [None]
  - FACIAL WASTING [None]
  - DEPRESSION [None]
